FAERS Safety Report 8024580-2 (Version None)
Quarter: 2012Q1

REPORT INFORMATION
  Report Type: 
  Country: None (occurrence: None)
  Receive Date: 20120105
  Receipt Date: 20111226
  Transmission Date: 20120608
  Serious: Yes (Hospitalization)
  Sender: FDA-Public Use
  Company Number: FR-BAXTER-2011BH040705

PATIENT
  Age: 11 Year
  Sex: Female
  Weight: 49 kg

DRUGS (5)
  1. CYCLOPHOSPHAMIDE [Suspect]
     Indication: OSTEOSARCOMA METASTATIC
     Route: 048
     Dates: start: 20100825, end: 20110105
  2. METHOTREXATE [Suspect]
     Indication: OSTEOSARCOMA METASTATIC
     Route: 048
     Dates: start: 20100825, end: 20110105
  3. CELEBREX [Concomitant]
     Indication: PRODUCT USED FOR UNKNOWN INDICATION
     Route: 065
  4. VINBLASTINE SULFATE [Suspect]
     Indication: OSTEOSARCOMA METASTATIC
     Route: 042
     Dates: start: 20100825, end: 20110105
  5. ZOMETA [Concomitant]
     Indication: PRODUCT USED FOR UNKNOWN INDICATION
     Route: 042

REACTIONS (1)
  - INFECTION [None]
